FAERS Safety Report 9309197 (Version 1)
Quarter: 2013Q2

REPORT INFORMATION
  Report Type: Spontaneous
  Country: US (occurrence: US)
  Receive Date: 20130525
  Receipt Date: 20130525
  Transmission Date: 20140414
  Serious: No
  Sender: FDA-Public Use
  Company Number: US-BRISTOL-MYERS SQUIBB COMPANY-18577619

PATIENT
  Sex: Female
  Weight: 81.63 kg

DRUGS (6)
  1. BYETTA PEN DISPOSABLE [Suspect]
     Indication: DIABETES MELLITUS
     Route: 058
  2. EXENATIDE UNK STRENGTH PEN, DISPOSABLE DEVICE [Suspect]
  3. GLYBURIDE [Concomitant]
     Indication: DIABETES MELLITUS
     Route: 048
     Dates: start: 2007
  4. SYNTHROID [Concomitant]
  5. ALTACE [Concomitant]
  6. GLUCOPHAGE [Concomitant]

REACTIONS (1)
  - Blood glucose abnormal [Unknown]
